FAERS Safety Report 20839571 (Version 3)
Quarter: 2025Q2

REPORT INFORMATION
  Report Type: Report from Study
  Country: CA (occurrence: CA)
  Receive Date: 20220517
  Receipt Date: 20250624
  Transmission Date: 20250716
  Serious: Yes (Other)
  Sender: ROCHE
  Company Number: CA-002147023-PHHY2014CA072039

PATIENT
  Age: 32 Year
  Sex: Female

DRUGS (8)
  1. XOLAIR [Suspect]
     Active Substance: OMALIZUMAB
     Indication: Asthma
     Route: 058
     Dates: start: 20140409
  2. XOLAIR [Suspect]
     Active Substance: OMALIZUMAB
     Route: 058
     Dates: start: 20180117
  3. XOLAIR [Suspect]
     Active Substance: OMALIZUMAB
     Route: 058
     Dates: start: 20191031
  4. XOLAIR [Suspect]
     Active Substance: OMALIZUMAB
     Route: 058
  5. PREDNISONE [Concomitant]
     Active Substance: PREDNISONE
     Indication: Product used for unknown indication
     Route: 065
  6. ADVAIR HFA [Concomitant]
     Active Substance: FLUTICASONE PROPIONATE\SALMETEROL XINAFOATE
     Indication: Product used for unknown indication
     Route: 065
  7. BRICANYL [Concomitant]
     Active Substance: TERBUTALINE SULFATE
     Indication: Product used for unknown indication
     Route: 065
  8. FLONASE [Concomitant]
     Active Substance: FLUTICASONE PROPIONATE
     Indication: Product used for unknown indication
     Route: 065

REACTIONS (10)
  - Pneumonia [Unknown]
  - Productive cough [Unknown]
  - Bronchitis bacterial [Unknown]
  - Weight increased [Unknown]
  - Bronchitis [Unknown]
  - Ligament sprain [Unknown]
  - Asthma [Recovering/Resolving]
  - Hypersensitivity [Unknown]
  - Drug hypersensitivity [Unknown]
  - Weight decreased [Unknown]

NARRATIVE: CASE EVENT DATE: 20140501
